FAERS Safety Report 5420995-7 (Version None)
Quarter: 2007Q3

REPORT INFORMATION
  Report Type: 
  Country: None (occurrence: None)
  Receive Date: 20070817
  Receipt Date: 20070803
  Transmission Date: 20080115
  Serious: Yes (Other)
  Sender: FDA-Public Use
  Company Number: US-1163847

PATIENT
  Sex: Male

DRUGS (3)
  1. MAXIDEX [Suspect]
     Dosage: OPHTHALMIC
     Route: 047
     Dates: start: 20070417, end: 20070418
  2. VIGAMOX [Concomitant]
  3. NEVANAC [Concomitant]

REACTIONS (3)
  - EYE IRRITATION [None]
  - INSTILLATION SITE IRRITATION [None]
  - VISUAL ACUITY REDUCED [None]
